FAERS Safety Report 4686746-9 (Version None)
Quarter: 2005Q2

REPORT INFORMATION
  Report Type: 
  Country: None (occurrence: None)
  Receive Date: 20050606
  Receipt Date: 20050520
  Transmission Date: 20051028
  Serious: Yes (Hospitalization)
  Sender: FDA-Public Use
  Company Number: US_0503114416

PATIENT
  Age: 31 Year
  Sex: Male
  Weight: 70 kg

DRUGS (1)
  1. STRATTERA [Suspect]
     Indication: ATTENTION DEFICIT/HYPERACTIVITY DISORDER
     Dosage: 80 MG/1 DAY
     Dates: start: 20040101

REACTIONS (9)
  - ASTHENIA [None]
  - BLOOD BILIRUBIN INCREASED [None]
  - DIZZINESS [None]
  - JAUNDICE [None]
  - NAUSEA [None]
  - PYREXIA [None]
  - TRANSAMINASES INCREASED [None]
  - VOMITING [None]
  - WEIGHT DECREASED [None]
